FAERS Safety Report 7957126-5 (Version None)
Quarter: 2011Q4

REPORT INFORMATION
  Report Type: 
  Country: None (occurrence: None)
  Receive Date: 20111205
  Receipt Date: 20111123
  Transmission Date: 20120403
  Serious: Yes (Hospitalization, Other)
  Sender: FDA-Public Use
  Company Number: MX-MEDIMMUNE-MEDI-0013811

PATIENT
  Sex: Male
  Weight: 4.6 kg

DRUGS (4)
  1. SYNAGIS [Suspect]
     Route: 030
     Dates: start: 20111021, end: 20111021
  2. FLUTICASONE PROPIONATE [Concomitant]
     Route: 055
     Dates: start: 20111017, end: 20111026
  3. OXYGEN [Concomitant]
     Indication: RESPIRATORY DISTRESS
  4. FLUTICASONE PROPIONATE [Concomitant]
     Indication: BRONCHOPULMONARY DYSPLASIA
     Dates: start: 20110601

REACTIONS (5)
  - HEPATOMEGALY [None]
  - RESPIRATORY DISTRESS [None]
  - OXYGEN SATURATION DECREASED [None]
  - FLUID OVERLOAD [None]
  - IRRITABILITY [None]
